FAERS Safety Report 22002940 (Version 1)
Quarter: 2023Q1

REPORT INFORMATION
  Report Type: Spontaneous
  Country: MX (occurrence: MX)
  Receive Date: 20230217
  Receipt Date: 20230217
  Transmission Date: 20230418
  Serious: Yes (Life-Threatening, Hospitalization, Other)
  Sender: FDA-Public Use
  Company Number: MX-SUN PHARMACEUTICAL INDUSTRIES LTD-2023R1-377853

PATIENT
  Age: 22 Year
  Sex: Male

DRUGS (1)
  1. AMLODIPINE [Suspect]
     Active Substance: AMLODIPINE BESYLATE
     Indication: Product used for unknown indication
     Dosage: 5 MILLIGRAM
     Route: 065

REACTIONS (5)
  - Intentional overdose [Unknown]
  - Toxicity to various agents [Unknown]
  - Hypotension [Unknown]
  - Sinus bradycardia [Unknown]
  - Stupor [Unknown]
